FAERS Safety Report 5159180-5 (Version None)
Quarter: 2006Q4

REPORT INFORMATION
  Report Type: 
  Country: None (occurrence: None)
  Receive Date: 20061120
  Receipt Date: 20061103
  Transmission Date: 20070319
  Serious: Yes (Hospitalization)
  Sender: FDA-Public Use
  Company Number: 232104

PATIENT
  Age: 50 Year
  Sex: Female

DRUGS (2)
  1. RAPTIVA [Suspect]
     Indication: PSORIASIS
     Dosage: 1 MG, 1/WEEK
     Dates: start: 20060711
  2. MINOCYCLINE HCL [Concomitant]

REACTIONS (1)
  - DIVERTICULITIS [None]
